FAERS Safety Report 5205124-7 (Version None)
Quarter: 2007Q1

REPORT INFORMATION
  Report Type: 
  Country: None (occurrence: None)
  Receive Date: 20070110
  Receipt Date: 20060711
  Transmission Date: 20070707
  Serious: Yes (Hospitalization)
  Sender: FDA-Public Use
  Company Number: CA-BOEHRINGER INGELHEIM GMBH, GERMANY-2006-CN-00260CN

PATIENT
  Sex: Female

DRUGS (1)
  1. MOBICOX TABLETS [Suspect]
     Indication: ARTHRITIS
     Dosage: 1 PER DAY IF NEEDED
     Dates: start: 20020111

REACTIONS (5)
  - ASTHENIA [None]
  - FATIGUE [None]
  - POLLAKIURIA [None]
  - PYREXIA [None]
  - RENAL IMPAIRMENT [None]
